FAERS Safety Report 4471310-7 (Version None)
Quarter: 2004Q4

REPORT INFORMATION
  Report Type: 
  Country: None (occurrence: None)
  Receive Date: 20041006
  Receipt Date: 20040921
  Transmission Date: 20050328
  Serious: Yes (Hospitalization, Other)
  Sender: FDA-Public Use
  Company Number: CIP04001833

PATIENT
  Age: 74 Year
  Sex: Female

DRUGS (8)
  1. ACTONEL [Suspect]
     Indication: OSTEOPOROSIS
     Dosage: 2.5 MG DAILY, ORAL
     Route: 048
     Dates: start: 20030728, end: 20040705
  2. GLAKAY (MENATETRENONE) [Suspect]
     Indication: OSTEOPOROSIS
     Dosage: 15 MG THREE TIMES DAILY, ORAL
     Route: 048
     Dates: start: 20030728, end: 20040705
  3. EURODIN (ESTAZOLAM) [Concomitant]
  4. PANTOSIN (PANTETHINE) [Concomitant]
  5. MAGNESIUM OXIDE    (MAGNESIUM OXIDE) [Concomitant]
  6. TINELAC [Concomitant]
  7. CALCIUM CARBONATE [Concomitant]
  8. MARZULENE (SODIUM GUALENATE) [Concomitant]

REACTIONS (16)
  - BAND NEUTROPHIL COUNT INCREASED [None]
  - BILIRUBIN CONJUGATED INCREASED [None]
  - BLOOD ALKALINE PHOSPHATASE INCREASED [None]
  - BLOOD CHLORIDE INCREASED [None]
  - BLOOD GLUCOSE INCREASED [None]
  - BLOOD PRESSURE INCREASED [None]
  - CARDIAC FAILURE CONGESTIVE [None]
  - CONTUSION [None]
  - FALL [None]
  - HAEMATOCRIT DECREASED [None]
  - HEPATIC FUNCTION ABNORMAL [None]
  - JAUNDICE [None]
  - LIVER DISORDER [None]
  - MYOCARDIAL INFARCTION [None]
  - PLATELET COUNT DECREASED [None]
  - WHITE BLOOD CELL COUNT DECREASED [None]
